FAERS Safety Report 7443863-8 (Version None)
Quarter: 2011Q2

REPORT INFORMATION
  Report Type: 
  Country: None (occurrence: None)
  Receive Date: 20110428
  Receipt Date: 20101109
  Transmission Date: 20111010
  Serious: Yes (Hospitalization, Other)
  Sender: FDA-Public Use
  Company Number: US-BAYER-201033816NA

PATIENT
  Age: 48 Year
  Sex: Female
  Weight: 64.399 kg

DRUGS (7)
  1. YASMIN [Suspect]
     Indication: CONTRACEPTION
     Route: 048
     Dates: start: 20030101, end: 20060801
  2. LEVAQUIN [Concomitant]
     Indication: PNEUMONIA
  3. DARVOCET [Concomitant]
  4. STEROID SHOT [Concomitant]
     Dosage: UNK
  5. IBUPROFEN [Concomitant]
  6. PROZAC [Concomitant]
  7. DIOVAN [Concomitant]
     Dosage: 80/12.5

REACTIONS (8)
  - PROCEDURAL PAIN [None]
  - PULMONARY EMBOLISM [None]
  - GALLBLADDER DISORDER [None]
  - QUALITY OF LIFE DECREASED [None]
  - DEEP VEIN THROMBOSIS [None]
  - PAIN IN EXTREMITY [None]
  - ABDOMINAL PAIN [None]
  - CHOLELITHIASIS [None]
